FAERS Safety Report 4789166-1 (Version None)
Quarter: 2005Q4

REPORT INFORMATION
  Report Type: 
  Country: None (occurrence: None)
  Receive Date: 20051003
  Receipt Date: 20050829
  Transmission Date: 20060501
  Serious: No
  Sender: FDA-Public Use
  Company Number: SU-2005-003970

PATIENT
  Age: 74 Year
  Sex: Female
  Weight: 56.246 kg

DRUGS (3)
  1. BENICAR [Suspect]
     Indication: DRUG USE FOR UNKNOWN INDICATION
     Dosage: 40MG QD PO
     Route: 048
     Dates: end: 20050501
  2. BENICAR HCT [Suspect]
     Indication: DRUG USE FOR UNKNOWN INDICATION
     Dosage: 40.125MG QD PO
     Route: 048
     Dates: start: 20050501
  3. LOVASTATIN [Concomitant]

REACTIONS (2)
  - DIZZINESS [None]
  - NECK PAIN [None]
